FAERS Safety Report 4413619-9 (Version None)
Quarter: 2004Q2

REPORT INFORMATION
  Report Type: 
  Country: None (occurrence: None)
  Receive Date: 20040630
  Receipt Date: 20040301
  Transmission Date: 20050107
  Serious: No
  Sender: FDA-Public Use
  Company Number: 04P-163-0251736-00

PATIENT
  Age: 53 Year
  Sex: Female
  Weight: 97.5234 kg

DRUGS (7)
  1. HUMIRA [Suspect]
     Indication: RHEUMATOID ARTHRITIS
     Dosage: 40 MG, 2 IN 3 WK, SUBCUTANEOUS
     Route: 058
     Dates: start: 20040228
  2. METHOTREXATE [Concomitant]
  3. RANITIDINE [Concomitant]
  4. HYDROCHLOROTHIAZIDE [Concomitant]
  5. GLUCOSAMINE W/ CHONDROITIN SULFATES [Concomitant]
  6. MULTI-VITAMINS [Concomitant]
  7. FOLIC ACID [Concomitant]

REACTIONS (1)
  - INJECTION SITE BURNING [None]
